FAERS Safety Report 17460867 (Version 1)
Quarter: 2020Q1

REPORT INFORMATION
  Report Type: Spontaneous
  Country: US (occurrence: US)
  Receive Date: 20200225
  Receipt Date: 20200225
  Transmission Date: 20200409
  Serious: Yes (Disabling)
  Sender: FDA-Public Use
  Company Number: None

PATIENT
  Age: 82 Year
  Sex: Female

DRUGS (2)
  1. BEOVU [Suspect]
     Active Substance: BROLUCIZUMAB-DBLL
  2. EYLEA [Suspect]
     Active Substance: AFLIBERCEPT

REACTIONS (1)
  - Uveitis [None]

NARRATIVE: CASE EVENT DATE: 20200210
